FAERS Safety Report 9888568 (Version 3)
Quarter: 2014Q1

REPORT INFORMATION
  Report Type: Report from Study
  Country: JP (occurrence: JP)
  Receive Date: 20140211
  Receipt Date: 20140224
  Transmission Date: 20141002
  Serious: Yes (Hospitalization)
  Sender: FDA-Public Use
  Company Number: JP-ROCHE-1330165

PATIENT
  Age: 76 Year
  Sex: Female
  Weight: 64.5 kg

DRUGS (12)
  1. TRASTUZUMAB [Suspect]
     Indication: HER-2 POSITIVE BREAST CANCER
     Dosage: LOADING DOSE
     Route: 065
     Dates: start: 20131017, end: 20131017
  2. TRASTUZUMAB [Suspect]
     Dosage: LAST DOSE PRIOR TO THE EVENT: 16/DEC/2013, MAINTAINANCE DOSE
     Route: 065
  3. DOXORUBICIN HYDROCHLORIDE [Suspect]
     Indication: HER-2 POSITIVE BREAST CANCER
     Route: 065
     Dates: start: 20130722
  4. CYCLOPHOSPHAMIDE [Suspect]
     Indication: HER-2 POSITIVE BREAST CANCER
     Route: 065
     Dates: start: 20130722
  5. MAGNESIUM OXIDE [Concomitant]
     Route: 065
     Dates: start: 20130902
  6. ETIZOLAM [Concomitant]
     Route: 065
     Dates: start: 20131017
  7. URSODEOXYCHOLIC ACID [Concomitant]
     Route: 065
     Dates: start: 20131024
  8. MONOAMMONIUM GLYCYRRHIZINATE [Concomitant]
     Route: 065
     Dates: start: 20131024
  9. BETAMETHASONE VALERATE [Concomitant]
     Route: 065
     Dates: start: 20131024
  10. KETOPROFEN [Concomitant]
     Route: 065
     Dates: start: 20131216
  11. FUROSEMIDE [Concomitant]
     Route: 065
     Dates: start: 20131216
  12. PLACEBO [Suspect]
     Indication: HER-2 POSITIVE BREAST CANCER
     Dosage: LAST DOSE PRIOR TO THE EVENT: 26/DEC/2013
     Route: 065
     Dates: start: 20131017

REACTIONS (1)
  - Fractured sacrum [Not Recovered/Not Resolved]
